FAERS Safety Report 23539904 (Version 1)
Quarter: 2024Q1

REPORT INFORMATION
  Report Type: Spontaneous
  Country: FR (occurrence: FR)
  Receive Date: 20240219
  Receipt Date: 20240219
  Transmission Date: 20240409
  Serious: Yes (Hospitalization)
  Sender: FDA-Public Use
  Company Number: None

PATIENT
  Age: 82 Year
  Sex: Male
  Weight: 80 kg

DRUGS (16)
  1. AMLODIPINE [Suspect]
     Active Substance: AMLODIPINE BESYLATE
     Indication: Hypertension
     Dosage: 1 DOSAGE FORM, QD
     Route: 048
  2. PERINDOPRIL [Suspect]
     Active Substance: PERINDOPRIL
     Indication: Hypertension
     Dosage: 1 DOSAGE FORM, QD
     Route: 048
  3. VENLAFAXINE [Suspect]
     Active Substance: VENLAFAXINE HYDROCHLORIDE
     Indication: Depression
     Dosage: BID (1 TABLET MORNING AND NOON)
     Route: 048
     Dates: end: 20231220
  4. PRAMIPEXOLE [Concomitant]
     Active Substance: PRAMIPEXOLE\PRAMIPEXOLE DIHYDROCHLORIDE
     Dosage: QD (1 TAB IN THE EVENING)
     Route: 065
  5. URAPIDIL [Concomitant]
     Active Substance: URAPIDIL
     Dosage: BID (1 CAPSULE MORNING AND EVENING)
     Route: 065
  6. TERALITHE [Concomitant]
     Active Substance: LITHIUM CARBONATE
     Dosage: QD (1.5 TABS IN THE EVENING)
     Route: 065
  7. KARDEGIC [Concomitant]
     Active Substance: ASPIRIN DL-LYSINE
     Dosage: QD (1 SACHET IN THE MORNING)
     Route: 065
  8. POLYETHYLENE GLYCOLS [Concomitant]
     Active Substance: POLYETHYLENE GLYCOLS
     Dosage: BID (1 SACHET MORNING AND NOON)
     Route: 065
  9. VALPROATE SODIUM [Concomitant]
     Active Substance: VALPROATE SODIUM
     Dosage: BID (1 TAB MORNING AND EVENING)
     Route: 065
  10. ACETAMINOPHEN [Concomitant]
     Active Substance: ACETAMINOPHEN
     Dosage: TID (1 TAB MORNING, AFTERNOON AND EVENING)
     Route: 065
  11. ALFUZOSIN [Concomitant]
     Active Substance: ALFUZOSIN
     Dosage: QD (1 TAB IN THE EVENING)
     Route: 065
  12. ROSUVASTATIN [Concomitant]
     Active Substance: ROSUVASTATIN
     Dosage: QD (1 TAB IN THE EVENING)
     Route: 065
  13. Perindopril arginine and amlodipine besylate tablets (i) [Concomitant]
     Dosage: QD (1 TAB IN THE MORNING)
     Route: 065
  14. OXAZEPAM [Concomitant]
     Active Substance: OXAZEPAM
     Dosage: 2 TABS MORNING, NOON AND NIGHT AND 1 TAB IN THE EVENING
     Route: 065
  15. VALPROATE SODIUM [Concomitant]
     Active Substance: VALPROATE SODIUM
     Dosage: BID (1 TAB IN THE MORNING AND 1 TAB IN THE EVENING)
     Route: 065
  16. ZOPICLONE [Concomitant]
     Active Substance: ZOPICLONE
     Dosage: QD (2 TABS AT 9 P.M.)
     Route: 065

REACTIONS (2)
  - Hypomania [Recovering/Resolving]
  - Hyperkalaemia [Recovering/Resolving]

NARRATIVE: CASE EVENT DATE: 20231207
